FAERS Safety Report 23963705 (Version 1)
Quarter: 2024Q2

REPORT INFORMATION
  Report Type: Spontaneous
  Country: JP (occurrence: JP)
  Receive Date: 20240611
  Receipt Date: 20240611
  Transmission Date: 20240716
  Serious: Yes (Death, Other)
  Sender: FDA-Public Use
  Company Number: JP-PHATHOM PHARMACEUTICALS INC.-2024PHT00387

PATIENT
  Age: 78 Year
  Sex: Male

DRUGS (3)
  1. VONOPRAZAN FUMARATE [Suspect]
     Active Substance: VONOPRAZAN FUMARATE
     Indication: Product used for unknown indication
     Dosage: UNK
     Route: 065
     Dates: start: 2022
  2. TIRABRUTINIB HYDROCHLORIDE [Suspect]
     Active Substance: TIRABRUTINIB HYDROCHLORIDE
     Indication: Central nervous system lymphoma
     Dosage: UNK
     Route: 048
     Dates: start: 2022
  3. RACOL [NUTRIENTS NOS] [Concomitant]
     Dosage: UNK

REACTIONS (4)
  - Death [Fatal]
  - Gastric haemorrhage [Unknown]
  - Respiratory failure [Unknown]
  - Leukoencephalopathy [Unknown]
